FAERS Safety Report 8607527-7 (Version None)
Quarter: 2012Q3

REPORT INFORMATION
  Report Type: 
  Country: None (occurrence: None)
  Receive Date: 20120821
  Receipt Date: 20120816
  Transmission Date: 20120928
  Serious: Yes (Life-Threatening, Hospitalization)
  Sender: FDA-Public Use
  Company Number: GB-SANOFI-AVENTIS-2012SA059361

PATIENT
  Age: 72 Year
  Sex: Male

DRUGS (8)
  1. ASPIRIN [Suspect]
     Indication: ANTIPLATELET THERAPY
     Route: 048
     Dates: start: 20120601, end: 20120717
  2. BLINDED THERAPY [Suspect]
     Indication: ACUTE MYOCARDIAL INFARCTION
     Route: 048
     Dates: start: 20120625
  3. BISOPROLOL FUMARATE [Concomitant]
  4. FUROSEMIDE [Concomitant]
  5. PERINDOPRIL ERBUMINE [Concomitant]
  6. CLOPIDOGREL BISULFATE [Suspect]
     Indication: MYOCARDIAL INFARCTION
     Route: 048
     Dates: start: 20120601
  7. ATORVASTATIN [Concomitant]
  8. NITROGLYCERIN [Concomitant]

REACTIONS (1)
  - ANAEMIA [None]
